FAERS Safety Report 18405286 (Version 1)
Quarter: 2020Q4

REPORT INFORMATION
  Report Type: Spontaneous
  Country: US (occurrence: US)
  Receive Date: 20201020
  Receipt Date: 20201020
  Transmission Date: 20210114
  Serious: Yes (Hospitalization)
  Sender: FDA-Public Use
  Company Number: None

PATIENT
  Age: 78 Year
  Sex: Male

DRUGS (21)
  1. MAGNESIUM-OX TAB 400MG [Concomitant]
     Dates: start: 20200810
  2. TAMSULOSIN CAP 0.4MG [Concomitant]
     Active Substance: TAMSULOSIN
  3. EZETIMIBE TAB 10MG [Concomitant]
     Dates: start: 20200707
  4. ATORVASTATIN TAB 20MG [Concomitant]
     Dates: start: 20200714
  5. METOLAZONE TAB 5MG [Concomitant]
     Dates: start: 20201001
  6. AMLODIPINE [Concomitant]
     Active Substance: AMLODIPINE BESYLATE
     Dates: start: 20200707
  7. B-12 TAB 500MCG [Concomitant]
     Dates: start: 20201007
  8. FUROSEMIDE TAB 80MG [Concomitant]
     Dates: start: 20200915
  9. FUROSEMIDE TAB 40MG [Concomitant]
     Dates: start: 20201007
  10. CYCLOSPORINE CAP 25MG MOD [Concomitant]
     Active Substance: CYCLOSPORINE
     Dates: start: 20200811
  11. ALLOPURINOL TAB 300MG [Concomitant]
     Dates: start: 20200707
  12. POT CL MICRO TAB 20MEQ ER [Concomitant]
     Dates: start: 20201007
  13. ELIQUIS TAB 2.5MG [Concomitant]
     Dates: start: 20201007
  14. METOPROL TAR TAB 50MG [Concomitant]
     Dates: start: 20200707
  15. FOLIC ACID TAB 1MG [Concomitant]
     Dates: start: 20201007
  16. METOPROL TAR TAB 100MG [Concomitant]
     Dates: start: 20201007
  17. CLOPIDOGREL TAB 75MG [Concomitant]
     Dates: start: 20201007
  18. SYMBICORT AER 160-4.5 [Concomitant]
     Dates: start: 20200828
  19. ATROPINE SUL SOL 1% OP [Concomitant]
     Dates: start: 20200729
  20. SPIRIVA CAP HANDIHLR [Concomitant]
     Dates: start: 20200928
  21. MYCOPHENOLIC [Suspect]
     Active Substance: MYCOPHENOLIC ACID
     Indication: RENAL TRANSPLANT
     Route: 048
     Dates: start: 20170812

REACTIONS (1)
  - Cardiac failure [None]

NARRATIVE: CASE EVENT DATE: 20201001
